FAERS Safety Report 6147135-3 (Version None)
Quarter: 2009Q2

REPORT INFORMATION
  Report Type: 
  Country: None (occurrence: None)
  Receive Date: 20090406
  Receipt Date: 20090323
  Transmission Date: 20091009
  Serious: Yes (Hospitalization, Other)
  Sender: FDA-Public Use
  Company Number: 1000003785

PATIENT
  Age: 87 Year
  Sex: Female
  Weight: 61.2356 kg

DRUGS (4)
  1. NAMENDA [Suspect]
     Indication: DEMENTIA
     Dosage: 10 MG (10 MG, 1 IN 1 D), ORAL
     Route: 048
     Dates: start: 20071101, end: 20071115
  2. NAMENDA [Suspect]
     Indication: DEMENTIA
     Dosage: 20 MG (10 MG, 2 IN 1 D), ORAL
     Route: 048
     Dates: start: 20071116, end: 20080327
  3. SPIRONOLACTONE [Concomitant]
  4. LOVASTATIN [Concomitant]

REACTIONS (15)
  - ANAEMIA [None]
  - ASTHENIA [None]
  - ATELECTASIS [None]
  - BONE MARROW FAILURE [None]
  - CEREBRAL HAEMORRHAGE [None]
  - DISORIENTATION [None]
  - HEPATIC LESION [None]
  - LEUKOPENIA [None]
  - MEGAKARYOCYTES DECREASED [None]
  - NO THERAPEUTIC RESPONSE [None]
  - OVARIAN MASS [None]
  - PLEURAL EFFUSION [None]
  - THROMBOCYTOPENIC PURPURA [None]
  - VITAMIN B12 DECREASED [None]
  - WEIGHT DECREASED [None]
